FAERS Safety Report 9318698 (Version 1)
Quarter: 2013Q2

REPORT INFORMATION
  Report Type: Spontaneous
  Country: US (occurrence: US)
  Receive Date: 20130530
  Receipt Date: 20130530
  Transmission Date: 20140414
  Serious: Yes (Death, Hospitalization)
  Sender: FDA-Public Use
  Company Number: US-ELI_LILLY_AND_COMPANY-US201305007376

PATIENT
  Age: 75 Year
  Sex: Female

DRUGS (1)
  1. GLUCAGON [Suspect]
     Indication: BLOOD GLUCOSE DECREASED
     Dosage: UNK
     Dates: start: 200807, end: 200807

REACTIONS (2)
  - Death [Fatal]
  - Hypertensive crisis [Unknown]
